FAERS Safety Report 17195124 (Version 1)
Quarter: 2019Q4

REPORT INFORMATION
  Report Type: Spontaneous
  Country: SE (occurrence: SE)
  Receive Date: 20191224
  Receipt Date: 20191224
  Transmission Date: 20200122
  Serious: Yes (Hospitalization)
  Sender: FDA-Public Use
  Company Number: SE-TEVA-2019-SE-1155414

PATIENT
  Age: 51 Year
  Sex: Female

DRUGS (8)
  1. OLANZAPINE. [Suspect]
     Active Substance: OLANZAPINE
     Dosage: MAX 6 ST ? 10 MG
     Route: 048
     Dates: start: 20181005, end: 20181005
  2. LAMOTRIGINE. [Suspect]
     Active Substance: LAMOTRIGINE
     Dosage: 600 MG + 150 MG
     Route: 048
     Dates: start: 20181005, end: 20181005
  3. CITALOPRAM [Suspect]
     Active Substance: CITALOPRAM HYDROBROMIDE
     Dosage: 120 MILLIGRAM
     Route: 048
     Dates: start: 20181005, end: 20181005
  4. MIRTAZAPINE. [Suspect]
     Active Substance: MIRTAZAPINE
     Dosage: 30 MILLIGRAM
     Route: 048
     Dates: start: 20181005, end: 20181005
  5. PROPAVAN [Suspect]
     Active Substance: PROPIOMAZINE
     Dosage: 50 MILLIGRAM
     Route: 048
     Dates: start: 20181005, end: 20181005
  6. CISORDINOL [Suspect]
     Active Substance: ZUCLOPENTHIXOL
     Dosage: 12 MILLIGRAM
     Route: 048
     Dates: start: 20181005, end: 20181005
  7. LEVAXIN [Suspect]
     Active Substance: LEVOTHYROXINE SODIUM
     Dosage: 3 ST ? 25 MICROGRAM:75 MILLIGRAM
     Dates: start: 20181005, end: 20181005
  8. MELATONIN [Suspect]
     Active Substance: MELATONIN
     Dosage: 6 MILLIGRAM
     Route: 048
     Dates: start: 20181005, end: 20181005

REACTIONS (5)
  - Electrocardiogram QT prolonged [Unknown]
  - Fatigue [Unknown]
  - Intentional self-injury [Unknown]
  - Muscle spasms [Unknown]
  - Intentional overdose [Unknown]

NARRATIVE: CASE EVENT DATE: 20181005
